FAERS Safety Report 8592418-0 (Version None)
Quarter: 2012Q3

REPORT INFORMATION
  Report Type: 
  Country: None (occurrence: None)
  Receive Date: 20120814
  Receipt Date: 20120803
  Transmission Date: 20120928
  Serious: Yes (Hospitalization, Other)
  Sender: FDA-Public Use
  Company Number: US-009507513-1208USA004084

PATIENT

DRUGS (3)
  1. PREDNISONE TAB [Suspect]
  2. HEXADROL [Suspect]
     Dosage: 4 MG, QD
     Route: 048
  3. HEXADROL [Suspect]
     Indication: SPLENOMEGALY
     Dosage: 4 MG, BID
     Route: 048

REACTIONS (3)
  - HEPATECTOMY [None]
  - ZYGOMYCOSIS [None]
  - DIAPHRAGMATIC OPERATION [None]
